FAERS Safety Report 8458397-1 (Version None)
Quarter: 2012Q2

REPORT INFORMATION
  Report Type: 
  Country: None (occurrence: None)
  Receive Date: 20120622
  Receipt Date: 20120619
  Transmission Date: 20120825
  Serious: Yes (Life-Threatening, Hospitalization)
  Sender: FDA-Public Use
  Company Number: IE-SANOFI-AVENTIS-2012SA005284

PATIENT
  Age: 80 Year
  Sex: Male
  Weight: 87.6 kg

DRUGS (4)
  1. MORPHINE [Concomitant]
  2. ASPIRIN [Concomitant]
  3. PREDNISOLONE [Suspect]
     Route: 048
     Dates: start: 20120116
  4. CABAZITAXEL [Suspect]
     Route: 042
     Dates: start: 20120116, end: 20120116

REACTIONS (3)
  - RESPIRATORY FAILURE [None]
  - CARDIAC FAILURE CONGESTIVE [None]
  - DIZZINESS [None]
